FAERS Safety Report 5271606-5 (Version None)
Quarter: 2007Q1

REPORT INFORMATION
  Report Type: 
  Country: None (occurrence: None)
  Receive Date: 20070321
  Receipt Date: 20070312
  Transmission Date: 20070707
  Serious: Yes (Other)
  Sender: FDA-Public Use
  Company Number: MY-PFIZER INC-2007016388

PATIENT
  Age: 64 Year
  Sex: Female

DRUGS (4)
  1. NORVASC [Suspect]
     Indication: HYPERTENSION
     Dosage: DAILY DOSE:5MG
     Route: 048
  2. PROFLOX [Suspect]
     Indication: URINARY TRACT INFECTION
     Dosage: DAILY DOSE:800MG
     Route: 048
  3. METOPROLOL SUCCINATE [Concomitant]
  4. ENALAPRIL MALEATE [Concomitant]

REACTIONS (7)
  - ANAPHYLACTIC REACTION [None]
  - ANGIOEDEMA [None]
  - HYPERHIDROSIS [None]
  - NAUSEA [None]
  - OEDEMA PERIPHERAL [None]
  - SWELLING [None]
  - VOMITING [None]
